FAERS Safety Report 11203966 (Version 2)
Quarter: 2015Q3

REPORT INFORMATION
  Report Type: Report from Study
  Country: US (occurrence: US)
  Receive Date: 20150619
  Receipt Date: 20150714
  Transmission Date: 20151125
  Serious: Yes (Hospitalization)
  Sender: FDA-Public Use
  Company Number: US-ACTELION-A-NJ2015-119448

PATIENT
  Age: 40 Year
  Sex: Female

DRUGS (4)
  1. TYVASO [Concomitant]
     Active Substance: TREPROSTINIL
  2. WARFARIN [Concomitant]
     Active Substance: WARFARIN
  3. MACITENTAN [Suspect]
     Active Substance: MACITENTAN
     Indication: PULMONARY ARTERIAL HYPERTENSION
     Dosage: 10 MG, QD
     Route: 048
  4. SILDENAFIL. [Concomitant]
     Active Substance: SILDENAFIL

REACTIONS (6)
  - Cardiac pacemaker insertion [Unknown]
  - Syncope [Unknown]
  - Headache [Unknown]
  - Arrhythmia [Unknown]
  - Dyspnoea [Unknown]
  - Dizziness postural [Unknown]

NARRATIVE: CASE EVENT DATE: 20150503
